FAERS Safety Report 6167576-8 (Version None)
Quarter: 2009Q2

REPORT INFORMATION
  Report Type: 
  Country: None (occurrence: None)
  Receive Date: 20090424
  Receipt Date: 20090415
  Transmission Date: 20091009
  Serious: Yes (Hospitalization, Other)
  Sender: FDA-Public Use
  Company Number: US-AMGEN-US339296

PATIENT
  Sex: Female

DRUGS (20)
  1. NPLATE [Suspect]
     Indication: IDIOPATHIC THROMBOCYTOPENIC PURPURA
     Dates: start: 20080929, end: 20081106
  2. ASPIRIN [Concomitant]
  3. ATENOLOL [Concomitant]
     Route: 048
  4. CALCIUM CARBONATE [Concomitant]
     Route: 048
  5. CELEBREX [Concomitant]
     Route: 048
  6. FOSAMAX [Concomitant]
     Route: 048
  7. GABAPENTIN [Concomitant]
     Route: 048
  8. MIRALAX [Concomitant]
     Route: 048
  9. NIFEDIPINE [Concomitant]
     Route: 048
  10. NITROGLYCERIN [Concomitant]
     Route: 062
  11. OXYBUTYNIN CHLORIDE [Concomitant]
     Route: 048
  12. OXYBUTYNIN CHLORIDE [Concomitant]
     Route: 048
  13. PHENAZOPYRIDINE HCL TAB [Concomitant]
     Route: 048
  14. PEPCID [Concomitant]
     Route: 048
  15. PREDNISONE [Concomitant]
     Route: 048
  16. PREMARIN [Concomitant]
     Route: 048
  17. VITAMIN TAB [Concomitant]
  18. RESTASIS [Concomitant]
  19. VYTORIN [Concomitant]
  20. PROTONIX [Concomitant]
     Route: 048

REACTIONS (5)
  - CEREBROVASCULAR ACCIDENT [None]
  - COMPUTERISED TOMOGRAM THORAX ABNORMAL [None]
  - COUGH [None]
  - TRANSIENT ISCHAEMIC ATTACK [None]
  - URINARY TRACT INFECTION [None]
